FAERS Safety Report 7995560-8 (Version None)
Quarter: 2011Q4

REPORT INFORMATION
  Report Type: 
  Country: None (occurrence: None)
  Receive Date: 20111220
  Receipt Date: 20111214
  Transmission Date: 20120403
  Serious: Yes (Hospitalization, Other)
  Sender: FDA-Public Use
  Company Number: FR-ABBOTT-11P-056-0883531-00

PATIENT
  Sex: Male

DRUGS (13)
  1. BACTRIM [Concomitant]
     Indication: PRODUCT USED FOR UNKNOWN INDICATION
  2. TOBREX [Concomitant]
     Indication: KERATITIS HERPETIC
     Route: 061
     Dates: start: 20100824, end: 20100901
  3. VITABACT [Concomitant]
     Indication: KERATITIS HERPETIC
     Route: 061
     Dates: start: 20100824, end: 20100901
  4. AMLODIPINE BESYLATE [Concomitant]
     Indication: PRODUCT USED FOR UNKNOWN INDICATION
  5. MYAMBUTOL [Concomitant]
     Indication: MYCOBACTERIUM KANSASII INFECTION
     Dates: start: 20100801
  6. MYCOPHENOLATE MOFETIL (CELLCEPT) [Concomitant]
     Indication: PRODUCT USED FOR UNKNOWN INDICATION
  7. XANAX [Concomitant]
     Indication: PRODUCT USED FOR UNKNOWN INDICATION
  8. CLARITHROMYCIN [Suspect]
     Indication: MYCOBACTERIUM KANSASII INFECTION
     Route: 048
     Dates: start: 20100801, end: 20101001
  9. TACROLIMUS [Concomitant]
     Indication: PRODUCT USED FOR UNKNOWN INDICATION
  10. VALACYCLOVIR HYDROCHLORIDE [Concomitant]
     Indication: KERATITIS HERPETIC
     Route: 048
     Dates: start: 20100824
  11. PREDNISONE TAB [Concomitant]
     Indication: PRODUCT USED FOR UNKNOWN INDICATION
  12. RIMIFON [Concomitant]
     Indication: MYCOBACTERIUM KANSASII INFECTION
     Dates: start: 20100801
  13. ZOVIRAX [Concomitant]
     Indication: KERATITIS HERPETIC
     Route: 061
     Dates: start: 20100824, end: 20100901

REACTIONS (9)
  - TRANSAMINASES INCREASED [None]
  - HEPATIC FUNCTION ABNORMAL [None]
  - SKIN LESION [None]
  - ALTERNARIA INFECTION [None]
  - CHOLESTASIS [None]
  - MYCOBACTERIUM KANSASII INFECTION [None]
  - LUNG DISORDER [None]
  - GRANULOMA [None]
  - HEPATOTOXICITY [None]
